FAERS Safety Report 25282168 (Version 2)
Quarter: 2025Q3

REPORT INFORMATION
  Report Type: Report from Study
  Country: ZA (occurrence: ZA)
  Receive Date: 20250508
  Receipt Date: 20250810
  Transmission Date: 20251021
  Serious: Yes (Other)
  Sender: ALEXION PHARMACEUTICALS
  Company Number: ZA-AstraZeneca-CH-00862426A

PATIENT
  Age: 82 Year
  Sex: Female

DRUGS (10)
  1. DAPAGLIFLOZIN [Suspect]
     Active Substance: DAPAGLIFLOZIN
     Indication: Diabetes mellitus
  2. MIRABEGRON [Concomitant]
     Active Substance: MIRABEGRON
  3. ESOMEPRAZOLE [Concomitant]
     Active Substance: ESOMEPRAZOLE
     Indication: Ulcer
  4. EUTHYROX [Concomitant]
     Active Substance: LEVOTHYROXINE SODIUM
     Indication: Hypothyroidism
  5. PREDNISONE [Concomitant]
     Active Substance: PREDNISONE
  6. DORMONOCT [Concomitant]
     Active Substance: LOPRAZOLAM
  7. Ezetimibe 10 teva [Concomitant]
     Indication: Hyperlipidaemia
  8. LOSARTAN POTASSIUM [Concomitant]
     Active Substance: LOSARTAN POTASSIUM
     Indication: Hypertension
  9. DULOXETINE HYDROCHLORIDE [Concomitant]
     Active Substance: DULOXETINE HYDROCHLORIDE
     Indication: Depression
  10. Aspen baclofen [Concomitant]

REACTIONS (2)
  - Drug hypersensitivity [Unknown]
  - Deafness [Unknown]
